FAERS Safety Report 18490651 (Version 1)
Quarter: 2020Q4

REPORT INFORMATION
  Report Type: Spontaneous
  Country: US (occurrence: US)
  Receive Date: 20201111
  Receipt Date: 20201111
  Transmission Date: 20210114
  Serious: Yes (Other)
  Sender: FDA-Public Use
  Company Number: None

PATIENT
  Age: 84 Year
  Sex: Male
  Weight: 80.29 kg

DRUGS (20)
  1. TEMOZOLOMIDE. [Suspect]
     Active Substance: TEMOZOLOMIDE
     Indication: BRAIN NEOPLASM MALIGNANT
     Dosage: ?          OTHER FREQUENCY:MON-FRI;?
     Route: 048
     Dates: start: 20201028, end: 20201111
  2. ALENDRONATE [Concomitant]
     Active Substance: ALENDRONATE SODIUM
  3. CLOPIDOGREL [Concomitant]
     Active Substance: CLOPIDOGREL BISULFATE
  4. CALCIUM AND VITAMIN D [Concomitant]
     Active Substance: CALCIUM\VITAMIN D
  5. FAMOTIDINE. [Concomitant]
     Active Substance: FAMOTIDINE
  6. LEVOTHYROXINE. [Concomitant]
     Active Substance: LEVOTHYROXINE
  7. FINASTERIDE. [Concomitant]
     Active Substance: FINASTERIDE
  8. METOPROLOL TARTRATE. [Concomitant]
     Active Substance: METOPROLOL TARTRATE
  9. OXCARBAZEPINE. [Concomitant]
     Active Substance: OXCARBAZEPINE
  10. TEMOZOLOMIDE. [Suspect]
     Active Substance: TEMOZOLOMIDE
     Indication: BRAIN NEOPLASM MALIGNANT
     Dosage: ?          OTHER FREQUENCY:MON-FRI;?
     Route: 048
     Dates: start: 20201028, end: 20201111
  11. ACETAMINOPHEN. [Concomitant]
     Active Substance: ACETAMINOPHEN
  12. KEPPRA [Concomitant]
     Active Substance: LEVETIRACETAM
  13. TAMSULOSIN [Concomitant]
     Active Substance: TAMSULOSIN
  14. ATORVASTATIN [Concomitant]
     Active Substance: ATORVASTATIN
  15. ELIQUIS [Concomitant]
     Active Substance: APIXABAN
  16. NITROGLYCERINE [Concomitant]
     Active Substance: NITROGLYCERIN
  17. OMEPRAZOLE. [Concomitant]
     Active Substance: OMEPRAZOLE
  18. COENZYME Q10 [Concomitant]
     Active Substance: DIETARY SUPPLEMENT\UBIDECARENONE
  19. GLIPIZIDE. [Concomitant]
     Active Substance: GLIPIZIDE
  20. AMLODIPINE [Concomitant]
     Active Substance: AMLODIPINE BESYLATE

REACTIONS (1)
  - Hospice care [None]

NARRATIVE: CASE EVENT DATE: 20201111
